FAERS Safety Report 8004836-X (Version None)
Quarter: 2011Q4

REPORT INFORMATION
  Report Type: 
  Country: None (occurrence: None)
  Receive Date: 20111223
  Receipt Date: 20111220
  Transmission Date: 20120403
  Serious: Yes (Hospitalization)
  Sender: FDA-Public Use
  Company Number: JP-BRISTOL-MYERS SQUIBB COMPANY-16311755

PATIENT
  Age: 32 Year
  Sex: Female
  Weight: 50 kg

DRUGS (17)
  1. INDOMETHACIN [Concomitant]
     Indication: RHEUMATOID ARTHRITIS
  2. ORENCIA [Suspect]
     Indication: RHEUMATOID ARTHRITIS
     Dosage: THERAPY DATES:16DEC2010,27DEC2010,13JAN2011,10FEB2011,17MAR2011 OVER 30 MINS
     Route: 041
     Dates: start: 20101216, end: 20110101
  3. CALCIUM LACTATE [Concomitant]
  4. ALENDRONATE SODIUM [Concomitant]
  5. METHOTREXATE [Suspect]
     Indication: RHEUMATOID ARTHRITIS
     Dates: end: 20110420
  6. EVOXAC [Concomitant]
  7. PYRIDOXINE HCL [Concomitant]
  8. FOLIC ACID [Concomitant]
  9. ISONIAZID [Concomitant]
     Indication: TUBERCULOSIS
  10. ALFAROL [Concomitant]
  11. DEXTROMETHORPHAN HYDROBROMIDE [Concomitant]
  12. PREDNISOLONE [Concomitant]
     Indication: RHEUMATOID ARTHRITIS
     Route: 048
     Dates: end: 20110413
  13. LANSOPRAZOLE [Concomitant]
  14. FERROUS CITRATE [Concomitant]
  15. PREDNISOLONE [Concomitant]
     Indication: RHEUMATOID ARTHRITIS
     Dosage: 5MG/D:UNK-13APR11 10MG/D:14APR11-20APR11 20MG/D:21APR2011-ONG
     Route: 048
  16. LACB [Concomitant]
  17. ADOFEED [Concomitant]
     Indication: RHEUMATOID ARTHRITIS
     Dosage: ADOFEED PAP

REACTIONS (1)
  - PLATELET COUNT DECREASED [None]
